FAERS Safety Report 6552576-6 (Version None)
Quarter: 2010Q1

REPORT INFORMATION
  Report Type: 
  Country: None (occurrence: None)
  Receive Date: 20100126
  Receipt Date: 20100113
  Transmission Date: 20100710
  Serious: Yes (Death)
  Sender: FDA-Public Use
  Company Number: US-PFIZER INC-2009258179

PATIENT
  Sex: Male
  Weight: 62.132 kg

DRUGS (11)
  1. SUTENT [Suspect]
     Indication: RENAL CELL CARCINOMA
     Dosage: 50 MG, 4 WEEKS ON 2 WEEKS OFF
  2. AMIODARONE [Concomitant]
     Dosage: 200 MG, 1X/DAY
     Route: 048
  3. TAMSULOSIN HYDROCHLORIDE [Concomitant]
     Dosage: 0.4 MG, 1X/DAY
     Route: 048
  4. ISOSORBIDE DINITRATE [Concomitant]
     Dosage: 30 MG, 1X/DAY
     Route: 048
  5. CARVEDILOL [Concomitant]
     Dosage: 25 MG, 1X/DAY
     Route: 048
  6. CUMADIN [Concomitant]
     Dosage: 2.5 MG, 1X/DAY
  7. TYLENOL W/ CODEINE NO. 3 [Concomitant]
     Indication: PAIN
     Dosage: UNK
  8. RAMIPRIL [Concomitant]
     Dosage: 10 MG, 1X/DAY
     Route: 048
  9. DIGOXIN [Concomitant]
     Dosage: 0.125 MG, 1X/DAY
     Route: 048
  10. AMITIZA [Concomitant]
     Dosage: 24 UG, 1X/DAY
     Route: 048
  11. SEVELAMER CARBONATE [Concomitant]
     Dosage: 200 MG, 1X/DAY
     Route: 048

REACTIONS (2)
  - DISEASE PROGRESSION [None]
  - METASTATIC RENAL CELL CARCINOMA [None]
